FAERS Safety Report 22197297 (Version 1)
Quarter: 2023Q2

REPORT INFORMATION
  Report Type: Spontaneous
  Country: CN (occurrence: CN)
  Receive Date: 20230411
  Receipt Date: 20230411
  Transmission Date: 20230721
  Serious: Yes (Other)
  Sender: FDA-Public Use
  Company Number: CN-009507513-2304CHN002408

PATIENT
  Age: 67 Year
  Sex: Male

DRUGS (6)
  1. KEYTRUDA [Suspect]
     Active Substance: PEMBROLIZUMAB
     Indication: Oesophageal carcinoma
     Dosage: 200 MG D1
     Dates: start: 20210204
  2. KEYTRUDA [Suspect]
     Active Substance: PEMBROLIZUMAB
     Dosage: 200 MG D1
     Dates: start: 20210225
  3. DOCETAXEL [Suspect]
     Active Substance: DOCETAXEL
     Dosage: UNK
     Dates: start: 20210204
  4. DOCETAXEL [Suspect]
     Active Substance: DOCETAXEL
     Dosage: UNK
     Dates: start: 20210225
  5. CISPLATIN [Suspect]
     Active Substance: CISPLATIN
     Dosage: UNK
     Dates: start: 20210204
  6. CISPLATIN [Suspect]
     Active Substance: CISPLATIN
     Dosage: UNK
     Dates: start: 20210225

REACTIONS (10)
  - Immune-mediated hepatitis [Unknown]
  - Pneumonia cytomegaloviral [Unknown]
  - Hypoxia [Unknown]
  - Oesophageal stenosis [Unknown]
  - Barrett^s oesophagus [Unknown]
  - Erosive oesophagitis [Unknown]
  - Hiatus hernia [Unknown]
  - Gastric polyps [Unknown]
  - Duodenal ulcer [Unknown]
  - Drug ineffective [Unknown]

NARRATIVE: CASE EVENT DATE: 20210322
